FAERS Safety Report 4497501-7 (Version None)
Quarter: 2004Q4

REPORT INFORMATION
  Report Type: 
  Country: None (occurrence: None)
  Receive Date: 20041110
  Receipt Date: 20041028
  Transmission Date: 20050328
  Serious: Yes (Other)
  Sender: FDA-Public Use
  Company Number: FR-ROCHE-384562

PATIENT
  Age: 48 Year
  Sex: Female

DRUGS (4)
  1. MYCOPHENOLATE MOFETIL [Suspect]
     Route: 065
  2. CYCLOSPORINE [Concomitant]
  3. AZATHIOPRINE [Concomitant]
  4. TACROLIMUS [Concomitant]

REACTIONS (5)
  - BLOOD CREATINE INCREASED [None]
  - HYPOALBUMINAEMIA [None]
  - HYPOCALCAEMIA [None]
  - INTESTINAL VILLI ATROPHY [None]
  - NORMOCHROMIC NORMOCYTIC ANAEMIA [None]
